FAERS Safety Report 18441103 (Version 1)
Quarter: 2020Q4

REPORT INFORMATION
  Report Type: Report from Study
  Country: None (occurrence: CA)
  Receive Date: 20201029
  Receipt Date: 20201029
  Transmission Date: 20210114
  Serious: Yes (Hospitalization, Other)
  Sender: FDA-Public Use
  Company Number: CA-ABBVIE-20K-028-3525770-00

PATIENT
  Age: 65 Year
  Sex: Female

DRUGS (2)
  1. RINVOQ [Suspect]
     Active Substance: UPADACITINIB
     Indication: RHEUMATOID ARTHRITIS
     Route: 048
  2. RINVOQ [Suspect]
     Active Substance: UPADACITINIB
     Route: 048

REACTIONS (12)
  - Illness [Unknown]
  - Intestinal mass [Unknown]
  - Asthenia [Unknown]
  - Stoma site haemorrhage [Unknown]
  - Musculoskeletal stiffness [Not Recovered/Not Resolved]
  - Nausea [Unknown]
  - Contusion [Unknown]
  - Depression [Recovering/Resolving]
  - Rheumatoid arthritis [Unknown]
  - Stoma site pain [Unknown]
  - Haematochezia [Unknown]
  - Headache [Unknown]

NARRATIVE: CASE EVENT DATE: 2020
